FAERS Safety Report 7916552-0 (Version None)
Quarter: 2011Q4

REPORT INFORMATION
  Report Type: 
  Country: None (occurrence: None)
  Receive Date: 20111116
  Receipt Date: 20111107
  Transmission Date: 20120403
  Serious: No
  Sender: FDA-Public Use
  Company Number: US-JNJFOC-20111103083

PATIENT
  Sex: Female
  Weight: 90.27 kg

DRUGS (7)
  1. VICODIN [Concomitant]
     Indication: PAIN
     Route: 048
     Dates: start: 20110601
  2. CHLOROQUINE DIPHOSPHATE [Concomitant]
     Indication: RHEUMATOID ARTHRITIS
     Route: 048
     Dates: start: 20060101
  3. NAPROSYN [Concomitant]
     Indication: PAIN
     Route: 048
     Dates: start: 20050101
  4. ENABLEX [Concomitant]
     Indication: URINARY INCONTINENCE
     Route: 048
     Dates: start: 20040101
  5. DURAGESIC-100 [Suspect]
     Indication: BACK PAIN
     Route: 062
     Dates: start: 20111001
  6. ASPIRIN [Concomitant]
     Indication: CARDIAC DISORDER
     Route: 048
     Dates: start: 19860101
  7. BENICAR [Concomitant]
     Indication: BLOOD PRESSURE
     Route: 048
     Dates: start: 20080101

REACTIONS (5)
  - APPLICATION SITE ERYTHEMA [None]
  - APPLICATION SITE PRURITUS [None]
  - WRONG TECHNIQUE IN DRUG USAGE PROCESS [None]
  - DRUG DOSE OMISSION [None]
  - PRODUCT ADHESION ISSUE [None]
